FAERS Safety Report 17436073 (Version 2)
Quarter: 2021Q2

REPORT INFORMATION
  Report Type: Spontaneous
  Country: CA (occurrence: CA)
  Receive Date: 20200219
  Receipt Date: 20210412
  Transmission Date: 20210716
  Serious: Yes (Other)
  Sender: FDA-Public Use
  Company Number: CA-SHIRE-CA202005727

PATIENT
  Age: 41 Year
  Sex: Male

DRUGS (4)
  1. HEMOFIL [Suspect]
     Active Substance: ANTIHEMOPHILIC FACTOR HUMAN
     Indication: VON WILLEBRAND^S DISEASE
     Dosage: 3 EVERY 1 WEEK
     Route: 042
     Dates: start: 20191204, end: 20191204
  2. HEMOFIL [Suspect]
     Active Substance: ANTIHEMOPHILIC FACTOR HUMAN
     Dosage: UNK, 3/WEEK
     Route: 042
  3. PLANTAGO OVATA [Concomitant]
     Active Substance: HERBALS\PLANTAGO OVATA LEAF
     Indication: PRODUCT USED FOR UNKNOWN INDICATION
     Dosage: UNK
     Route: 048
     Dates: start: 20191105
  4. TAPAZOLE [Concomitant]
     Active Substance: METHIMAZOLE
     Indication: PRODUCT USED FOR UNKNOWN INDICATION
     Dosage: 30 MILLIGRAM, QD
     Route: 048
     Dates: start: 201911, end: 201911

REACTIONS (13)
  - Iron deficiency anaemia [Recovered/Resolved]
  - Drug ineffective [Unknown]
  - Back pain [Unknown]
  - Procedural pain [Unknown]
  - Dyspnoea [Not Recovered/Not Resolved]
  - Pallor [Unknown]
  - Fatigue [Not Recovered/Not Resolved]
  - Haemoglobin decreased [Recovered/Resolved]
  - Palpitations [Unknown]
  - Haemorrhoids [Recovered/Resolved]
  - Malaise [Unknown]
  - Rectal haemorrhage [Recovered/Resolved]
  - Lethargy [Not Recovered/Not Resolved]

NARRATIVE: CASE EVENT DATE: 201912
